FAERS Safety Report 16439010 (Version 1)
Quarter: 2019Q2

REPORT INFORMATION
  Report Type: Report from Study
  Country: CN (occurrence: CN)
  Receive Date: 20190617
  Receipt Date: 20190617
  Transmission Date: 20190711
  Serious: Yes (Other)
  Sender: FDA-Public Use
  Company Number: CN-ROCHE-2333488

PATIENT

DRUGS (4)
  1. CYCLOPHOSPHAMIDE. [Suspect]
     Active Substance: CYCLOPHOSPHAMIDE
     Indication: HER-2 POSITIVE BREAST CANCER
     Dosage: USED CONSECUTIVELY FOR 2 TIMES
     Route: 065
  2. TRASTUZUMAB. [Suspect]
     Active Substance: TRASTUZUMAB
     Indication: HER-2 POSITIVE BREAST CANCER
     Dosage: 10 TO 20MG/KG
     Route: 065
  3. METHOTREXATE. [Suspect]
     Active Substance: METHOTREXATE
     Indication: HER-2 POSITIVE BREAST CANCER
     Dosage: ON THE 1ST AND 8TH DAYS?USED CONSECUTIVELY FOR 4 TIMES
     Route: 065
  4. FLUOROURACIL. [Suspect]
     Active Substance: FLUOROURACIL
     Indication: HER-2 POSITIVE BREAST CANCER
     Dosage: WAS USED CONSECUTIVELY FOR 5-10 DAYS WITH THE DOSAGE OF 10 TO 20MG/KG
     Route: 065

REACTIONS (4)
  - Renal impairment [Unknown]
  - Vomiting [Unknown]
  - Nausea [Unknown]
  - Bone marrow failure [Unknown]
